FAERS Safety Report 18815927 (Version 1)
Quarter: 2021Q1

REPORT INFORMATION
  Report Type: Spontaneous
  Country: US (occurrence: US)
  Receive Date: 20210201
  Receipt Date: 20210201
  Transmission Date: 20210419
  Serious: Yes (Hospitalization)
  Sender: FDA-Public Use
  Company Number: None

PATIENT
  Age: 67 Year
  Sex: Male

DRUGS (10)
  1. LISINOPRIL. [Concomitant]
     Active Substance: LISINOPRIL
     Dates: start: 20160705
  2. MYCOPHENOLATE [Concomitant]
     Active Substance: MYCOPHENOLIC ACID
     Dates: start: 20160705
  3. TACROLIMUS. [Suspect]
     Active Substance: TACROLIMUS
     Indication: RENAL TRANSPLANT
     Dosage: ?          OTHER FREQUENCY:Q12H;?
     Route: 048
     Dates: start: 20150904
  4. SIMVASTATIN. [Concomitant]
     Active Substance: SIMVASTATIN
     Dates: start: 20160705
  5. VITAMIN D3 [Concomitant]
     Active Substance: CHOLECALCIFEROL
     Dates: start: 20180324
  6. PAROXETINE. [Concomitant]
     Active Substance: PAROXETINE
     Dates: start: 20160705
  7. TACROLIMUS. [Suspect]
     Active Substance: TACROLIMUS
     Indication: RENAL TRANSPLANT
     Dosage: ?          OTHER FREQUENCY:Q12H;?
     Route: 048
     Dates: start: 20151029
  8. METOPROLOL TARTRATE. [Concomitant]
     Active Substance: METOPROLOL TARTRATE
     Dates: start: 20160803
  9. FISH OIL [Concomitant]
     Active Substance: FISH OIL
     Dates: start: 20180324
  10. PREDNISIONE [Concomitant]
     Dates: start: 20160705

REACTIONS (1)
  - Fluid retention [None]

NARRATIVE: CASE EVENT DATE: 20210101
